FAERS Safety Report 10985067 (Version 1)
Quarter: 2015Q2

REPORT INFORMATION
  Report Type: Spontaneous
  Country: FI (occurrence: FI)
  Receive Date: 20150403
  Receipt Date: 20150403
  Transmission Date: 20150821
  Serious: Yes (Hospitalization)
  Sender: FDA-Public Use
  Company Number: FI-ABBVIE-15K-055-1368805-00

PATIENT
  Age: 11 Year
  Sex: Female

DRUGS (5)
  1. HUMIRA [Suspect]
     Active Substance: ADALIMUMAB
     Indication: IRITIS
  2. HUMIRA [Suspect]
     Active Substance: ADALIMUMAB
     Indication: JUVENILE IDIOPATHIC ARTHRITIS
     Route: 058
     Dates: start: 201402, end: 201407
  3. TREXAN [Concomitant]
     Active Substance: METHOTREXATE SODIUM
     Indication: JUVENILE IDIOPATHIC ARTHRITIS
     Route: 048
     Dates: start: 200512, end: 201407
  4. TREXAN [Concomitant]
     Active Substance: METHOTREXATE SODIUM
     Indication: IRITIS
  5. FOLIC ACID. [Concomitant]
     Active Substance: FOLIC ACID
     Indication: PRODUCT USED FOR UNKNOWN INDICATION
     Dates: end: 201407

REACTIONS (2)
  - Oropharyngeal discomfort [Recovered/Resolved]
  - Epiglottitis [Recovered/Resolved]

NARRATIVE: CASE EVENT DATE: 20140727
